FAERS Safety Report 24046248 (Version 1)
Quarter: 2024Q3

REPORT INFORMATION
  Report Type: Spontaneous
  Country: US (occurrence: None)
  Receive Date: 20240703
  Receipt Date: 20240703
  Transmission Date: 20241016
  Serious: Yes (Hospitalization)
  Sender: Public
  Company Number: None

PATIENT
  Age: 54 Year
  Sex: Female
  Weight: 131.7 kg

DRUGS (2)
  1. XELODA [Suspect]
     Active Substance: CAPECITABINE
     Dosage: OTHER QUANTITY : 26 TABLET;?
     Dates: end: 20240620
  2. OXALIPLATIN [Suspect]
     Active Substance: OXALIPLATIN
     Dates: end: 20240607

REACTIONS (4)
  - Haematuria [None]
  - Dysuria [None]
  - Heart rate increased [None]
  - White blood cells urine positive [None]

NARRATIVE: CASE EVENT DATE: 20240628
